FAERS Safety Report 5245185-2 (Version None)
Quarter: 2007Q1

REPORT INFORMATION
  Report Type: 
  Country: None (occurrence: None)
  Receive Date: 20070223
  Receipt Date: 20070212
  Transmission Date: 20070707
  Serious: Yes (Hospitalization)
  Sender: FDA-Public Use
  Company Number: US-ROCHE-480417

PATIENT
  Age: 36 Year
  Sex: Female
  Weight: 59 kg

DRUGS (1)
  1. BONIVA [Suspect]
     Indication: OSTEOPOROSIS
     Dosage: TAKEN MONTHLY
     Route: 048
     Dates: start: 20070123

REACTIONS (2)
  - HAEMATOCHEZIA [None]
  - UPPER GASTROINTESTINAL HAEMORRHAGE [None]
